FAERS Safety Report 13896010 (Version 1)
Quarter: 2017Q3

REPORT INFORMATION
  Report Type: Spontaneous
  Country: US (occurrence: US)
  Receive Date: 20170823
  Receipt Date: 20170823
  Transmission Date: 20171127
  Serious: No
  Sender: FDA-Public Use
  Company Number: US-TEVA-694223USA

PATIENT
  Age: 86 Year
  Sex: Female

DRUGS (10)
  1. MYRBETRIQ [Interacting]
     Active Substance: MIRABEGRON
     Dosage: 50 MILLIGRAM DAILY;
     Route: 065
  2. CLOPIDOGREL [Concomitant]
     Active Substance: CLOPIDOGREL BISULFATE
     Route: 065
  3. PROBIOTIC [Concomitant]
     Active Substance: PROBIOTICS NOS
     Route: 065
  4. LEVOTHYROXINE. [Concomitant]
     Active Substance: LEVOTHYROXINE
  5. TORSEMIDE. [Concomitant]
     Active Substance: TORSEMIDE
  6. METOPROLOL SUCCINATE. [Suspect]
     Active Substance: METOPROLOL SUCCINATE
     Indication: PRODUCT USED FOR UNKNOWN INDICATION
     Dosage: 25 MILLIGRAM DAILY;
     Route: 065
     Dates: start: 20160727
  7. MYRBETRIQ [Interacting]
     Active Substance: MIRABEGRON
     Indication: PRODUCT USED FOR UNKNOWN INDICATION
     Dosage: 25 MILLIGRAM DAILY;
     Route: 065
  8. LISINOPRIL. [Concomitant]
     Active Substance: LISINOPRIL
     Route: 065
  9. POTASSIUM CHLORIDE. [Concomitant]
     Active Substance: POTASSIUM CHLORIDE
     Route: 065
  10. VITAMIN B12 [Concomitant]
     Active Substance: CYANOCOBALAMIN
     Route: 065

REACTIONS (1)
  - Drug interaction [Unknown]
